FAERS Safety Report 9147911 (Version 1)
Quarter: 2013Q1

REPORT INFORMATION
  Report Type: Spontaneous
  Country: US (occurrence: US)
  Receive Date: 20130305
  Receipt Date: 20130305
  Transmission Date: 20140127
  Serious: Yes (Other)
  Sender: FDA-Public Use
  Company Number: US-RB-050208-13

PATIENT
  Age: 57 Year
  Sex: Male

DRUGS (4)
  1. MUCINEX [Suspect]
     Indication: PNEUMONIA BACTERIAL
     Route: 048
     Dates: start: 20130211
  2. MUCINEX [Suspect]
  3. MUCINEX [Suspect]
  4. AVELOX [Suspect]
     Indication: PNEUMONIA BACTERIAL

REACTIONS (6)
  - Oedema mouth [Not Recovered/Not Resolved]
  - Swelling face [Not Recovered/Not Resolved]
  - Swollen tongue [Not Recovered/Not Resolved]
  - Eye swelling [Not Recovered/Not Resolved]
  - Urticaria [Not Recovered/Not Resolved]
  - Off label use [Not Recovered/Not Resolved]
